FAERS Safety Report 9915866 (Version 1)
Quarter: 2014Q1

REPORT INFORMATION
  Report Type: Spontaneous
  Country: US (occurrence: None)
  Receive Date: 20140219
  Receipt Date: 20140219
  Transmission Date: 20141002
  Serious: Yes (Life-Threatening)
  Sender: FDA-Public Use
  Company Number: None

PATIENT
  Age: 52 Year
  Sex: 0
  Weight: 63.5 kg

DRUGS (1)
  1. BACITRACIN ZINC [Suspect]
     Indication: SCRATCH
     Dosage: LESS THAN PEA AMOUNT ONE TIME APPLIED TO A SURFACE, USUALLY THE SKIN
     Dates: start: 20140203, end: 20140203

REACTIONS (4)
  - Pruritus [None]
  - Vision blurred [None]
  - Erythema [None]
  - Product label issue [None]
